FAERS Safety Report 9255859 (Version 2)
Quarter: 2013Q2

REPORT INFORMATION
  Report Type: Spontaneous
  Country: JP (occurrence: JP)
  Receive Date: 20130425
  Receipt Date: 20130607
  Transmission Date: 20140414
  Serious: Yes (Hospitalization)
  Sender: FDA-Public Use
  Company Number: JP-EISAI INC-E2090-02618-SPO-JP

PATIENT
  Age: 68 Year
  Sex: Female

DRUGS (8)
  1. EXCEGRAN [Suspect]
     Indication: EPILEPSY
     Route: 048
     Dates: start: 20130325, end: 20130417
  2. TAKEPRON [Concomitant]
     Indication: GASTROOESOPHAGEAL REFLUX DISEASE
     Dosage: 15 MG DAILY
     Route: 048
     Dates: start: 20130320, end: 20130417
  3. TAKEPRON [Concomitant]
     Dosage: UNKNOWN
     Route: 048
     Dates: start: 20130509
  4. ATELEC [Concomitant]
     Indication: HYPERTENSION
     Dosage: 20 MG DAILY
     Route: 048
     Dates: start: 20130320, end: 20130417
  5. SYMMETREL [Concomitant]
     Indication: CEREBRAL INFARCTION
     Dosage: 150 MG DAILY
     Route: 048
     Dates: start: 20130320, end: 20130417
  6. SYMMETREL [Concomitant]
     Indication: ALTERED STATE OF CONSCIOUSNESS
  7. BLOPRESS [Concomitant]
     Indication: HYPERTENSION
     Dosage: 8 MG DAILY
     Route: 048
     Dates: start: 20130320, end: 20130417
  8. BLOPRESS [Concomitant]
     Dosage: UNKNOWN
     Route: 048
     Dates: start: 20130509

REACTIONS (1)
  - Toxic epidermal necrolysis [Recovered/Resolved]
